FAERS Safety Report 18695615 (Version 1)
Quarter: 2021Q1

REPORT INFORMATION
  Report Type: Spontaneous
  Country: US (occurrence: US)
  Receive Date: 20210104
  Receipt Date: 20210104
  Transmission Date: 20210419
  Serious: Yes (Hospitalization, Other)
  Sender: FDA-Public Use
  Company Number: US-TORRENT-00010609

PATIENT
  Age: 71 Year
  Sex: Female

DRUGS (2)
  1. ACICLOVIR [Suspect]
     Active Substance: ACYCLOVIR
     Indication: OPHTHALMIC HERPES SIMPLEX
     Dosage: TWICE DAILY
  2. VALACYCLOVIR [Suspect]
     Active Substance: VALACYCLOVIR HYDROCHLORIDE
     Indication: OPHTHALMIC HERPES SIMPLEX
     Dosage: THREE TIMES DAILY

REACTIONS (9)
  - Delirium [Recovering/Resolving]
  - Asthenia [Unknown]
  - Myoclonus [Unknown]
  - Hallucination, auditory [Recovering/Resolving]
  - Neurotoxicity [Recovered/Resolved]
  - Hyporeflexia [Unknown]
  - Nystagmus [Unknown]
  - Confusional state [Recovering/Resolving]
  - Dysarthria [Unknown]
